FAERS Safety Report 23213366 (Version 1)
Quarter: 2023Q4

REPORT INFORMATION
  Report Type: Spontaneous
  Country: US (occurrence: US)
  Receive Date: 20231121
  Receipt Date: 20231121
  Transmission Date: 20240109
  Serious: Yes (Other)
  Sender: FDA-Public Use
  Company Number: US-SPECGX-T202302228

PATIENT
  Age: 43 Year
  Sex: Female

DRUGS (2)
  1. METHADONE [Suspect]
     Active Substance: METHADONE HYDROCHLORIDE
     Indication: Back pain
     Dosage: 195 MILLIGRAM, QD
     Route: 065
  2. METHADONE [Suspect]
     Active Substance: METHADONE HYDROCHLORIDE
     Indication: Drug dependence

REACTIONS (5)
  - Adrenal insufficiency [Recovering/Resolving]
  - Hypoglycaemia [Recovering/Resolving]
  - Diabetic hepatopathy [Unknown]
  - Weight decreased [Unknown]
  - Malnutrition [Unknown]
